FAERS Safety Report 15617076 (Version 1)
Quarter: 2018Q4

REPORT INFORMATION
  Report Type: Spontaneous
  Country: US (occurrence: US)
  Receive Date: 20181114
  Receipt Date: 20181114
  Transmission Date: 20190205
  Serious: Yes (Death, Hospitalization, Other)
  Sender: FDA-Public Use
  Company Number: US-EXELIXIS-CABO-18016103

PATIENT
  Age: 47 Year
  Sex: Male

DRUGS (3)
  1. CABOMETYX [Suspect]
     Active Substance: CABOZANTINIB S-MALATE
     Indication: METASTATIC RENAL CELL CARCINOMA
     Dosage: 60 MG, QD
     Dates: start: 20180510, end: 20180717
  2. OPIOIDS [Concomitant]
     Active Substance: UNSPECIFIED INGREDIENT
  3. PEMBROLIZUMAB. [Suspect]
     Active Substance: PEMBROLIZUMAB
     Indication: RENAL CELL CARCINOMA
     Dosage: 200 MG, Q3WEEKS
     Dates: start: 20180510, end: 20180709

REACTIONS (3)
  - Posterior reversible encephalopathy syndrome [Not Recovered/Not Resolved]
  - Malignant neoplasm progression [Fatal]
  - Adrenal insufficiency [Unknown]

NARRATIVE: CASE EVENT DATE: 2018
